FAERS Safety Report 18005348 (Version 6)
Quarter: 2021Q2

REPORT INFORMATION
  Report Type: Report from Study
  Country: AR (occurrence: AR)
  Receive Date: 20200709
  Receipt Date: 20210629
  Transmission Date: 20210717
  Serious: Yes (Other)
  Sender: FDA-Public Use
  Company Number: NVSC2020AR132761

PATIENT
  Age: 55 Year
  Sex: Female

DRUGS (6)
  1. FEMARA [Suspect]
     Active Substance: LETROZOLE
     Indication: BREAST CANCER METASTATIC
     Dosage: 2.5 MG, QD
     Route: 065
     Dates: start: 20200301
  2. KISQALI [Suspect]
     Active Substance: RIBOCICLIB
     Indication: BREAST CANCER METASTATIC
     Dosage: 600 MG, QD
     Route: 065
     Dates: start: 20200301, end: 20200617
  3. FEMARA [Suspect]
     Active Substance: LETROZOLE
     Dosage: 2.5 MG, QD
     Route: 048
  4. FULVESTRANT. [Suspect]
     Active Substance: FULVESTRANT
     Indication: PRODUCT USED FOR UNKNOWN INDICATION
     Dosage: 250 MG, QMO
     Route: 061
     Dates: start: 20200301, end: 20200617
  5. KISQALI [Suspect]
     Active Substance: RIBOCICLIB
     Dosage: 400 MG, QD
     Route: 048
     Dates: start: 20200301
  6. KISQALI [Suspect]
     Active Substance: RIBOCICLIB
     Dosage: 400 MG, QD
     Route: 048
     Dates: start: 202007

REACTIONS (12)
  - Laryngitis [Unknown]
  - Bone pain [Unknown]
  - Oropharyngeal pain [Unknown]
  - Liver function test increased [Not Recovered/Not Resolved]
  - Headache [Unknown]
  - Decreased immune responsiveness [Unknown]
  - Pyrexia [Unknown]
  - Blood bilirubin decreased [Unknown]
  - Liver disorder [Unknown]
  - Cystitis [Unknown]
  - Blood bilirubin increased [Unknown]
  - Poisoning [Unknown]

NARRATIVE: CASE EVENT DATE: 20200507
